FAERS Safety Report 8021301-4 (Version None)
Quarter: 2012Q1

REPORT INFORMATION
  Report Type: 
  Country: None (occurrence: None)
  Receive Date: 20120104
  Receipt Date: 20111222
  Transmission Date: 20120608
  Serious: Yes (Hospitalization)
  Sender: FDA-Public Use
  Company Number: DE-UCBSA-041599

PATIENT
  Sex: Male

DRUGS (8)
  1. STALEVO 100 [Concomitant]
     Dosage: DOSE INCREASE
     Dates: start: 20100101
  2. MADOPAR LT [Suspect]
     Dosage: 1 TABLET AS NEEDED
  3. RIVASTIGMINS [Concomitant]
     Dosage: INCREASED TO 6 MG
     Dates: start: 20110801
  4. STALEVO 100 [Concomitant]
     Dates: end: 20100101
  5. STALEVO 100 [Concomitant]
     Dosage: 75/18, 75/200
  6. RIVASTIGMINS [Concomitant]
     Dates: end: 20110801
  7. NEUPRO [Suspect]
     Dosage: 6 MG
     Route: 062
     Dates: end: 20110801
  8. NEUPRO [Suspect]
     Dosage: INCREASED TO 12 MG
     Route: 062
     Dates: start: 20110801

REACTIONS (1)
  - HALLUCINATION [None]
